FAERS Safety Report 9320419 (Version 3)
Quarter: 2013Q4

REPORT INFORMATION
  Report Type: Spontaneous
  Country: US (occurrence: US)
  Receive Date: 20130530
  Receipt Date: 20131122
  Transmission Date: 20140711
  Serious: Yes (Hospitalization)
  Sender: FDA-Public Use
  Company Number: US-B.I. PHARMACEUTICALS,INC./RIDGEFIELD-2013-BI-14689BP

PATIENT
  Age: 78 Year
  Sex: Male
  Weight: 127.91 kg

DRUGS (13)
  1. PRADAXA [Suspect]
     Indication: ATRIAL FIBRILLATION
     Dosage: 300 MG
     Route: 048
     Dates: start: 201105, end: 20110713
  2. PRADAXA [Suspect]
  3. PRINZIDE ZESTORETIC [Concomitant]
     Route: 048
  4. LACHYDRIN [Concomitant]
     Route: 061
  5. PRILOSEC [Concomitant]
     Dosage: 20 MG
     Route: 048
  6. ZOCOR [Concomitant]
     Dosage: 40 MG
     Route: 048
     Dates: start: 2000
  7. NORVASC [Concomitant]
     Dosage: 10 MG
     Route: 048
     Dates: start: 2010
  8. HYTRIN [Concomitant]
     Dosage: 10 MG
     Route: 048
     Dates: start: 2000
  9. AMARYL [Concomitant]
     Dosage: 4 MG
     Route: 048
     Dates: start: 2008
  10. LASIX [Concomitant]
     Dosage: 40 MG
     Route: 048
     Dates: start: 2000
  11. VOLTAREN [Concomitant]
     Dosage: 75 MG
     Route: 048
  12. LISINOPRIL [Concomitant]
     Dates: start: 1998
  13. FERROUS SULFATE [Concomitant]
     Dates: start: 2000

REACTIONS (8)
  - Gastrointestinal haemorrhage [Unknown]
  - Haemorrhagic anaemia [Unknown]
  - Gastrointestinal haemorrhage [Unknown]
  - Anaemia [Unknown]
  - Syncope [Unknown]
  - Renal failure acute [Unknown]
  - Renal disorder [Unknown]
  - Myocardial infarction [Unknown]
